FAERS Safety Report 6406019-3 (Version None)
Quarter: 2009Q4

REPORT INFORMATION
  Report Type: 
  Country: None (occurrence: None)
  Receive Date: 20091016
  Receipt Date: 20091016
  Transmission Date: 20100525
  Serious: Yes (Other)
  Sender: FDA-Public Use
  Company Number: None

PATIENT
  Sex: Male
  Weight: 95.9 kg

DRUGS (2)
  1. CLOFARABINE 1 MG/ML GENZYME [Suspect]
     Indication: ACUTE MYELOID LEUKAEMIA
     Dosage: 66.2 MG DAILY IV
     Route: 042
     Dates: start: 20090819, end: 20090823
  2. CYTARABINE [Suspect]
     Dosage: 44.1 MG DAILY SQ
     Route: 058
     Dates: start: 20090819, end: 20090823

REACTIONS (5)
  - DECREASED APPETITE [None]
  - DYSGEUSIA [None]
  - FOOD AVERSION [None]
  - HYPERHIDROSIS [None]
  - SKIN ODOUR ABNORMAL [None]
